FAERS Safety Report 7029765-X (Version None)
Quarter: 2010Q4

REPORT INFORMATION
  Report Type: 
  Country: None (occurrence: None)
  Receive Date: 20101001
  Receipt Date: 20100920
  Transmission Date: 20110411
  Serious: Yes (Other)
  Sender: FDA-Public Use
  Company Number: 7018109

PATIENT
  Age: 55 Year
  Sex: Female

DRUGS (6)
  1. LEVOTHYROXINE SODIUM [Suspect]
     Indication: HYPOTHYROIDISM
     Dosage: 100 MCG (100 MCG), 200 MCG (200 MCG), ORAL
     Route: 048
     Dates: start: 20100501
  2. XENICAL [Suspect]
     Indication: OVERWEIGHT
     Dosage: 120 MG (120 MG), ORAL
     Route: 048
     Dates: start: 20100305
  3. OMEPRAZOLE [Concomitant]
  4. ASPIRIN [Concomitant]
  5. ATORVASTATIN CALCIUM [Concomitant]
  6. COAPROVEL (KARVEA HCT) [Concomitant]

REACTIONS (2)
  - DRUG INTERACTION [None]
  - HYPOTHYROIDISM [None]
